FAERS Safety Report 4810955-9 (Version None)
Quarter: 2005Q4

REPORT INFORMATION
  Report Type: 
  Country: None (occurrence: None)
  Receive Date: 20051025
  Receipt Date: 20051012
  Transmission Date: 20060501
  Serious: Yes (Other)
  Sender: FDA-Public Use
  Company Number: 2005142863

PATIENT
  Sex: Female

DRUGS (1)
  1. DETROL LA [Suspect]
     Indication: HYPERTONIC BLADDER
     Dosage: 6 MG (1 IN 1 D), ORAL
     Route: 048
     Dates: start: 19980101

REACTIONS (4)
  - CARDIAC FAILURE CONGESTIVE [None]
  - CONSTIPATION [None]
  - DRY MOUTH [None]
  - PHARYNGOLARYNGEAL PAIN [None]
